FAERS Safety Report 20373801 (Version 1)
Quarter: 2022Q1

REPORT INFORMATION
  Report Type: Spontaneous
  Country: FR (occurrence: FR)
  Receive Date: 20220125
  Receipt Date: 20220125
  Transmission Date: 20220423
  Serious: Yes (Hospitalization, Other)
  Sender: FDA-Public Use
  Company Number: None

PATIENT
  Age: 19 Year
  Sex: Female
  Weight: 33 kg

DRUGS (11)
  1. ESOMEPRAZOLE [Suspect]
     Active Substance: ESOMEPRAZOLE
     Indication: Product used for unknown indication
     Route: 048
     Dates: start: 2013
  2. PRAVASTATIN SODIUM [Suspect]
     Active Substance: PRAVASTATIN SODIUM
     Indication: Product used for unknown indication
     Route: 048
     Dates: start: 2015
  3. INSULIN NOS [Suspect]
     Active Substance: INSULIN NOS
     Indication: Insulin-requiring type 2 diabetes mellitus
     Route: 058
     Dates: start: 201303
  4. CREON [Suspect]
     Active Substance: PANCRELIPASE AMYLASE\PANCRELIPASE LIPASE\PANCRELIPASE PROTEASE
     Indication: Cystic fibrosis
     Dosage: TO BE ADAPTED ACCORDING TO THE MEALS
     Route: 048
     Dates: start: 201303
  5. PROGRAF [Suspect]
     Active Substance: TACROLIMUS
     Indication: Prophylaxis against transplant rejection
     Dosage: STRENGTH:1 MG, 3 MG 2/DAY
     Route: 048
     Dates: start: 2013
  6. SULFAMETHOXAZOLE\TRIMETHOPRIM [Suspect]
     Active Substance: SULFAMETHOXAZOLE\TRIMETHOPRIM
     Indication: Infection prophylaxis
     Dosage: 3/WEEK
     Route: 048
     Dates: start: 2013
  7. AFINITOR [Suspect]
     Active Substance: EVEROLIMUS
     Indication: Prophylaxis against transplant rejection
     Dosage: STRENGTH:5MG, 2.5 MG *2/DAY
     Route: 048
     Dates: start: 2013
  8. PIPERACILLIN AND TAZOBACTAM [Suspect]
     Active Substance: PIPERACILLIN SODIUM\TAZOBACTAM SODIUM
     Indication: Bacterial disease carrier
     Dosage: STRENGTH: 4 G/500 MG, 4G,3/DAY
     Route: 041
     Dates: start: 20200109, end: 20200120
  9. CIPROFLOXACIN [Suspect]
     Active Substance: CIPROFLOXACIN
     Indication: Bacterial disease carrier
     Dosage: STRENGTH: 250 MG, 250 MG 2/DAY
     Route: 048
     Dates: start: 20200109, end: 20200120
  10. AZITHROMYCIN [Suspect]
     Active Substance: AZITHROMYCIN
     Indication: Infection prophylaxis
     Dosage: 250MG 3/WEEK
     Route: 048
     Dates: start: 201303
  11. CERTICAN [Suspect]
     Active Substance: EVEROLIMUS
     Indication: Prophylaxis against transplant rejection
     Dosage: STRENGTH:0.5 MG, 0.5 MG 2/DAY
     Route: 048
     Dates: start: 2013

REACTIONS (2)
  - Abortion spontaneous [Unknown]
  - Maternal exposure during pregnancy [Unknown]

NARRATIVE: CASE EVENT DATE: 20200118
